FAERS Safety Report 4451936-7 (Version None)
Quarter: 2004Q3

REPORT INFORMATION
  Report Type: 
  Country: None (occurrence: None)
  Receive Date: 20040913
  Receipt Date: 20040728
  Transmission Date: 20050211
  Serious: No
  Sender: FDA-Public Use
  Company Number: 2004-BP-06239BP(0)

PATIENT
  Sex: Female

DRUGS (5)
  1. SPIRIVA [Suspect]
     Indication: CHRONIC OBSTRUCTIVE AIRWAYS DISEASE
     Dosage: 18 MCG (18 MCG), IH
     Dates: start: 20040720, end: 20040722
  2. ADVAIR (SERETIDE MITE) [Concomitant]
  3. ZITHROMAX [Concomitant]
  4. ETHAMUTOL [Concomitant]
  5. RIFCEAPIN [Concomitant]

REACTIONS (2)
  - PRURITUS [None]
  - URTICARIA [None]
